FAERS Safety Report 13250679 (Version 1)
Quarter: 2017Q1

REPORT INFORMATION
  Report Type: Spontaneous
  Country: TR (occurrence: TR)
  Receive Date: 20170220
  Receipt Date: 20170220
  Transmission Date: 20170428
  Serious: Yes (Other)
  Sender: FDA-Public Use
  Company Number: TR-ENDO PHARMACEUTICALS INC-2017-000784

PATIENT

DRUGS (3)
  1. CIPROFLOXACIN EXTENDED-RELEASE [Suspect]
     Active Substance: CIPROFLOXACIN\CIPROFLOXACIN HYDROCHLORIDE
     Indication: VOMITING
  2. CIPROFLOXACIN EXTENDED-RELEASE [Suspect]
     Active Substance: CIPROFLOXACIN\CIPROFLOXACIN HYDROCHLORIDE
     Indication: RHINORRHOEA
     Dosage: UNK UNK, UNKNOWN
     Route: 048
  3. CIPROFLOXACIN EXTENDED-RELEASE [Suspect]
     Active Substance: CIPROFLOXACIN\CIPROFLOXACIN HYDROCHLORIDE
     Indication: DIARRHOEA

REACTIONS (2)
  - Toxic epidermal necrolysis [Recovered/Resolved]
  - Drug reaction with eosinophilia and systemic symptoms [Recovered/Resolved]
